FAERS Safety Report 12416846 (Version 2)
Quarter: 2016Q2

REPORT INFORMATION
  Report Type: Report from Study
  Country: NL (occurrence: NL)
  Receive Date: 20160530
  Receipt Date: 20160623
  Transmission Date: 20160815
  Serious: Yes (Hospitalization, Other)
  Sender: FDA-Public Use
  Company Number: NL-TAKEDA-2016TUS008654

PATIENT
  Age: 71 Year
  Sex: Female

DRUGS (6)
  1. DURATEARS                          /00635701/ [Concomitant]
  2. GLICLAZIDE [Concomitant]
     Active Substance: GLICLAZIDE
     Dosage: 30 MG, QD
  3. VISIDIC [Concomitant]
  4. VEDOLIZUMAB [Suspect]
     Active Substance: VEDOLIZUMAB
     Indication: COLITIS ULCERATIVE
     Dosage: 300 MG, UNK
     Route: 042
     Dates: start: 20160412
  5. MEZAVANT [Concomitant]
     Active Substance: MESALAMINE
     Dosage: 4 G, QD
  6. INSULIN [Concomitant]
     Active Substance: INSULIN NOS

REACTIONS (5)
  - Rash generalised [Unknown]
  - Inflammatory marker increased [Unknown]
  - Hyponatraemia [Unknown]
  - Colitis [Recovered/Resolved]
  - Acute kidney injury [Unknown]

NARRATIVE: CASE EVENT DATE: 20160515
